FAERS Safety Report 5785933-6 (Version None)
Quarter: 2008Q2

REPORT INFORMATION
  Report Type: 
  Country: None (occurrence: None)
  Receive Date: 20080624
  Receipt Date: 20070928
  Transmission Date: 20081010
  Serious: No
  Sender: FDA-Public Use
  Company Number: US-ASTRAZENECA-2007UW14059

PATIENT
  Age: 79 Year
  Sex: Female
  Weight: 76.2 kg

DRUGS (9)
  1. PULIMCORT RESPULES [Suspect]
     Indication: ASTHMA
     Route: 055
  2. ALBUTEROL SULFATE [Concomitant]
     Dosage: .83%
     Route: 055
  3. LASIX [Concomitant]
  4. SYNTHROID [Concomitant]
     Route: 048
  5. LOVASTATIN [Concomitant]
  6. LIBRIUM [Concomitant]
  7. MELOXICAM [Concomitant]
  8. GENTEAL [Concomitant]
     Route: 047
  9. VITAMINS [Concomitant]

REACTIONS (4)
  - MEDICATION ERROR [None]
  - PRODUCTIVE COUGH [None]
  - TREMOR [None]
  - WEIGHT INCREASED [None]
